FAERS Safety Report 7450028-2 (Version None)
Quarter: 2011Q2

REPORT INFORMATION
  Report Type: 
  Country: None (occurrence: None)
  Receive Date: 20110502
  Receipt Date: 20091122
  Transmission Date: 20111010
  Serious: Yes (Other)
  Sender: FDA-Public Use
  Company Number: US-BAYER-200940612NA

PATIENT
  Age: 29 Year
  Sex: Male
  Weight: 225.85 kg

DRUGS (6)
  1. LIDOCAINE [Concomitant]
     Dosage: 100 MG, UNK
     Route: 042
     Dates: start: 20060322, end: 20060323
  2. CEFAZOLIN [Concomitant]
     Dosage: 1 G, UNK
     Route: 042
     Dates: start: 20060322, end: 20060323
  3. HEPARIN [Concomitant]
     Dosage: 10000 U, UNK
     Route: 042
     Dates: start: 20060322, end: 20060323
  4. TRASYLOL [Suspect]
     Indication: AORTIC VALVE REPLACEMENT
     Dosage: 100 ML BOLUS THEN 25 ML HOUR
     Route: 042
     Dates: start: 20060322, end: 20060323
  5. TRASYLOL [Suspect]
     Indication: UNEVALUABLE EVENT
  6. MANNITOL [Concomitant]
     Dosage: 12.5 G, UNK
     Route: 042
     Dates: start: 20060322, end: 20060323

REACTIONS (11)
  - RENAL INJURY [None]
  - ANXIETY [None]
  - RENAL IMPAIRMENT [None]
  - EMOTIONAL DISTRESS [None]
  - UNEVALUABLE EVENT [None]
  - INJURY [None]
  - ANHEDONIA [None]
  - FEAR [None]
  - STRESS [None]
  - PAIN [None]
  - RENAL FAILURE [None]
